FAERS Safety Report 18240649 (Version 1)
Quarter: 2020Q3

REPORT INFORMATION
  Report Type: Spontaneous
  Country: FR (occurrence: FR)
  Receive Date: 20200908
  Receipt Date: 20200908
  Transmission Date: 20201103
  Serious: Yes (Hospitalization)
  Sender: FDA-Public Use
  Company Number: FR-TEVA-2020-FR-1823359

PATIENT
  Age: 83 Year
  Sex: Male
  Weight: 88 kg

DRUGS (4)
  1. LORAZEPAM. [Suspect]
     Active Substance: LORAZEPAM
     Dosage: 1 MILLIGRAM
     Route: 048
  2. OMEPRAZOLE. [Suspect]
     Active Substance: OMEPRAZOLE
     Dosage: 20 MILLIGRAM
     Route: 048
  3. HYDROCHLOROTHIAZIDE. [Suspect]
     Active Substance: HYDROCHLOROTHIAZIDE
     Dosage: 12.5 MILLIGRAM
     Route: 048
  4. STRESAM, GELULE [Suspect]
     Active Substance: ETIFOXINE HYDROCHLORIDE
     Indication: DEPRESSION
     Dosage: 150 MILLIGRAM
     Route: 048
     Dates: start: 202006, end: 20200801

REACTIONS (2)
  - Hyponatraemia [Not Recovered/Not Resolved]
  - Inappropriate antidiuretic hormone secretion [Not Recovered/Not Resolved]

NARRATIVE: CASE EVENT DATE: 20200731
